FAERS Safety Report 11863598 (Version 3)
Quarter: 2016Q1

REPORT INFORMATION
  Report Type: Report from Study
  Country: CA (occurrence: CA)
  Receive Date: 20151223
  Receipt Date: 20160217
  Transmission Date: 20160526
  Serious: Yes (Other)
  Sender: FDA-Public Use
  Company Number: PHHY2012CA061459

PATIENT
  Age: 66 Year
  Sex: Male

DRUGS (3)
  1. SANDOSTATIN LAR DEPOT [Suspect]
     Active Substance: OCTREOTIDE ACETATE
     Indication: METASTATIC CARCINOID TUMOUR
     Dosage: 30 MG, QMO (EVERY 4 WEEKS)
     Route: 030
     Dates: start: 20100201
  2. SANDOSTATIN LAR DEPOT [Suspect]
     Active Substance: OCTREOTIDE ACETATE
     Indication: HEPATIC CANCER METASTATIC
     Dosage: 30 MG, QMO (ONCE MONTH)
     Route: 030
     Dates: start: 20120711
  3. SANDOSTATIN LAR DEPOT [Suspect]
     Active Substance: OCTREOTIDE ACETATE
     Dosage: 30 MG, QMO (EVERY 4 WEEKS)
     Route: 030
     Dates: start: 20120825

REACTIONS (18)
  - Fall [Unknown]
  - Needle issue [Unknown]
  - Underdose [Unknown]
  - Epigastric discomfort [Unknown]
  - Blood pressure systolic increased [Not Recovered/Not Resolved]
  - Injection site pain [Unknown]
  - Tooth abscess [Unknown]
  - Tooth fracture [Unknown]
  - Stress [Unknown]
  - Blood pressure increased [Unknown]
  - Injection site erythema [Unknown]
  - Toothache [Unknown]
  - Malignant neoplasm progression [Unknown]
  - Neoplasm [Unknown]
  - Injection site mass [Unknown]
  - Body temperature decreased [Unknown]
  - Face injury [Unknown]
  - Injection site bruising [Not Recovered/Not Resolved]

NARRATIVE: CASE EVENT DATE: 20120711
